FAERS Safety Report 8351039-5 (Version None)
Quarter: 2012Q2

REPORT INFORMATION
  Report Type: 
  Country: None (occurrence: None)
  Receive Date: 20120510
  Receipt Date: 20120319
  Transmission Date: 20120825
  Serious: Yes (Other)
  Sender: FDA-Public Use
  Company Number: DK-ELI_LILLY_AND_COMPANY-DK201205002642

PATIENT
  Sex: Male

DRUGS (4)
  1. FORTEO [Suspect]
     Dosage: UNK
     Dates: start: 20110101
  2. ENALAPRIL MALEATE [Concomitant]
  3. SIMVASTATIN [Concomitant]
  4. CENTYL [Concomitant]

REACTIONS (1)
  - CEREBRAL THROMBOSIS [None]
